FAERS Safety Report 10900548 (Version 4)
Quarter: 2017Q2

REPORT INFORMATION
  Report Type: Report from Study
  Country: US (occurrence: US)
  Receive Date: 20150310
  Receipt Date: 20170620
  Transmission Date: 20170829
  Serious: Yes (Hospitalization, Other)
  Sender: FDA-Public Use
  Company Number: US-AMGEN-USASP2015020601

PATIENT
  Age: 56 Year
  Sex: Male

DRUGS (1)
  1. ENBREL [Suspect]
     Active Substance: ETANERCEPT
     Indication: RHEUMATOID ARTHRITIS
     Dosage: 25 MG, 2 TIMES/WK
     Route: 065
     Dates: start: 199908

REACTIONS (19)
  - Disability [Recovered/Resolved]
  - Pain in extremity [Not Recovered/Not Resolved]
  - Pulmonary congestion [Recovered/Resolved]
  - Cyst [Unknown]
  - Dizziness [Recovered/Resolved]
  - Erectile dysfunction [Unknown]
  - Renal cancer stage II [Unknown]
  - Nephrolithiasis [Unknown]
  - Appendicitis perforated [Recovered/Resolved]
  - Foot deformity [Not Recovered/Not Resolved]
  - Chondrolysis [Recovered/Resolved]
  - Knee arthroplasty [Unknown]
  - Malaise [Recovered/Resolved]
  - Mobility decreased [Recovered/Resolved]
  - Pain [Recovered/Resolved]
  - Musculoskeletal stiffness [Recovered/Resolved]
  - Rash [Unknown]
  - Neuropathy peripheral [Not Recovered/Not Resolved]
  - Sensitivity to weather change [Not Recovered/Not Resolved]

NARRATIVE: CASE EVENT DATE: 1999
